FAERS Safety Report 18227996 (Version 2)
Quarter: 2020Q3

REPORT INFORMATION
  Report Type: Other
  Country: TR (occurrence: TR)
  Receive Date: 20200903
  Receipt Date: 20200908
  Transmission Date: 20201103
  Serious: Yes (Other)
  Sender: FDA-Public Use
  Company Number: TR-ROCHE-2670011

PATIENT

DRUGS (4)
  1. BEVACIZUMAB. [Suspect]
     Active Substance: BEVACIZUMAB
     Indication: CERVIX CARCINOMA
     Route: 065
  2. CARBOPLATIN. [Suspect]
     Active Substance: CARBOPLATIN
     Indication: CERVIX CARCINOMA
     Route: 065
  3. CISPLATIN. [Suspect]
     Active Substance: CISPLATIN
     Indication: CERVIX CARCINOMA
     Route: 065
  4. PACLITAXEL. [Suspect]
     Active Substance: PACLITAXEL
     Indication: CERVIX CARCINOMA
     Route: 065

REACTIONS (12)
  - Nausea [Unknown]
  - Intestinal obstruction [Unknown]
  - Hypertension [Unknown]
  - Thrombocytopenia [Unknown]
  - Anaemia [Unknown]
  - Thrombosis [Recovered/Resolved]
  - Hepatotoxicity [Unknown]
  - Gastrointestinal haemorrhage [Unknown]
  - Peripheral sensory neuropathy [Unknown]
  - Neutropenia [Unknown]
  - Leukopenia [Unknown]
  - Pain [Unknown]
